FAERS Safety Report 10189541 (Version 1)
Quarter: 2014Q2

REPORT INFORMATION
  Report Type: Spontaneous
  Country: CA (occurrence: CA)
  Receive Date: 20140522
  Receipt Date: 20140522
  Transmission Date: 20141212
  Serious: Yes (Hospitalization)
  Sender: FDA-Public Use
  Company Number: CA-B.I. PHARMACEUTICALS,INC./RIDGEFIELD-2014-BI-21785CN

PATIENT
  Age: 84 Year
  Sex: Male
  Weight: 78.01 kg

DRUGS (12)
  1. MICARDIS PLUS [Suspect]
     Indication: PRODUCT USED FOR UNKNOWN INDICATION
     Dosage: 1 ANZ
     Route: 048
  2. PANTOPRAZOLE [Suspect]
     Indication: PRODUCT USED FOR UNKNOWN INDICATION
     Dosage: 80 MG
     Route: 048
  3. ACETYLSALICYLIC ACID [Concomitant]
     Route: 065
  4. CLONAZEPAM [Concomitant]
     Route: 065
  5. FINASTERIDE [Concomitant]
     Route: 065
  6. FLOMAX CR [Concomitant]
     Route: 065
  7. LEVETIRACETAM [Concomitant]
     Route: 065
  8. METFORMIN [Concomitant]
     Route: 065
  9. METOPROLOL [Concomitant]
     Route: 065
  10. PANTOPRAZOLE [Concomitant]
     Route: 065
  11. SIMVASTATIN [Concomitant]
     Route: 065
  12. TYLENOL ARTHRITIS PAIN [Concomitant]
     Route: 065

REACTIONS (9)
  - Arthralgia [Recovered/Resolved]
  - Chvostek^s sign [Recovered/Resolved]
  - Diarrhoea [Recovered/Resolved]
  - Fatigue [Recovered/Resolved]
  - Hypocalcaemia [Recovered/Resolved]
  - Hypokalaemia [Recovered/Resolved]
  - Hypomagnesaemia [Recovered/Resolved]
  - Muscle spasms [Recovered/Resolved]
  - Drug interaction [Recovered/Resolved]
